FAERS Safety Report 4880094-X (Version None)
Quarter: 2005Q4

REPORT INFORMATION
  Report Type: 
  Country: None (occurrence: None)
  Receive Date: 20051223
  Receipt Date: 20050923
  Transmission Date: 20060501
  Serious: Yes (Hospitalization)
  Sender: FDA-Public Use
  Company Number: 05P-163-0311073-00

PATIENT
  Age: 44 Year
  Sex: Female
  Weight: 95 kg

DRUGS (8)
  1. HUMIRA [Suspect]
     Indication: RHEUMATOID ARTHRITIS
     Dosage: 40 MG, 1 IN 2 WK, SUBCUTANEOUS
     Route: 058
     Dates: start: 20050804, end: 20050907
  2. CEFADROXIL [Concomitant]
  3. AMLODIPINE BESYLATE [Concomitant]
  4. PROPACET 100 [Concomitant]
  5. METHOTREXATE [Concomitant]
  6. TRAMADOL HCL [Concomitant]
  7. FOLIC ACID [Concomitant]
  8. CEPHALEXIN [Concomitant]

REACTIONS (2)
  - BACTERIAL INFECTION [None]
  - RASH [None]
